FAERS Safety Report 8251963-8 (Version None)
Quarter: 2012Q2

REPORT INFORMATION
  Report Type: 
  Country: None (occurrence: None)
  Receive Date: 20120402
  Receipt Date: 20120329
  Transmission Date: 20120825
  Serious: Yes (Death, Hospitalization)
  Sender: FDA-Public Use
  Company Number: PHHY2012CA027198

PATIENT
  Age: 52 Year
  Sex: Female

DRUGS (2)
  1. HYDROXYCHLOROQUINE SULFATE [Suspect]
     Indication: SYSTEMIC LUPUS ERYTHEMATOSUS
     Dosage: 400 MG, DAILY
  2. MYCOPHENOLATE MOFETIL [Suspect]
     Indication: SYSTEMIC LUPUS ERYTHEMATOSUS
     Dosage: 500 MG, DAILY

REACTIONS (16)
  - RESPIRATORY FAILURE [None]
  - PROGRESSIVE MULTIFOCAL LEUKOENCEPHALOPATHY [None]
  - NYSTAGMUS [None]
  - ATAXIA [None]
  - HYPOKINESIA [None]
  - VOMITING [None]
  - TREMOR [None]
  - PNEUMONIA ASPIRATION [None]
  - PULMONARY EMBOLISM [None]
  - DIPLOPIA [None]
  - DYSARTHRIA [None]
  - CEREBELLAR SYNDROME [None]
  - HYPOTONIA [None]
  - DYSPHAGIA [None]
  - NAUSEA [None]
  - GAIT DISTURBANCE [None]
